FAERS Safety Report 8816864 (Version 1)
Quarter: 2012Q4

REPORT INFORMATION
  Report Type: Spontaneous
  Country: US (occurrence: None)
  Receive Date: 20121002
  Receipt Date: 20121002
  Transmission Date: 20130627
  Serious: Yes (Death)
  Sender: FDA-Public Use
  Company Number: None

PATIENT
  Age: 75 Year
  Sex: Male

DRUGS (1)
  1. LENALIDOMIDE [Suspect]
     Indication: MYELODYSPLASTIC SYNDROME
     Dosage: 50mg daily oral
     Route: 048
     Dates: start: 20120629, end: 20120911

REACTIONS (3)
  - Myelodysplastic syndrome [None]
  - Acute myeloid leukaemia [None]
  - Neoplasm progression [None]
